FAERS Safety Report 21190784 (Version 2)
Quarter: 2022Q4

REPORT INFORMATION
  Report Type: Report from Study
  Country: US (occurrence: US)
  Receive Date: 20220809
  Receipt Date: 20221011
  Transmission Date: 20230113
  Serious: Yes (Death, Other)
  Sender: FDA-Public Use
  Company Number: US-BIOGEN-2022BI01146059

PATIENT
  Age: 68 Year
  Sex: Male
  Weight: 98.518 kg

DRUGS (73)
  1. TYSABRI [Suspect]
     Active Substance: NATALIZUMAB
     Indication: Disease risk factor
     Route: 050
     Dates: start: 20181029, end: 20181112
  2. POTASSIUM SODIUM PHOSPHATE [Concomitant]
     Indication: Product used for unknown indication
     Route: 050
     Dates: start: 20190116, end: 20190117
  3. ACYCLOVIR [Concomitant]
     Active Substance: ACYCLOVIR
     Indication: Product used for unknown indication
     Route: 050
  4. ACYCLOVIR [Concomitant]
     Active Substance: ACYCLOVIR
     Dosage: 200 MILLIGRAMS PER 5ML ORAL SUSPENSION
     Route: 050
     Dates: start: 20190123, end: 20190215
  5. CHLORHEXIDINE GLUCONATE [Concomitant]
     Active Substance: CHLORHEXIDINE GLUCONATE
     Indication: Product used for unknown indication
     Dosage: 1 APPLICATION
     Route: 050
  6. FINASTERIDE [Concomitant]
     Active Substance: FINASTERIDE
     Indication: Product used for unknown indication
     Route: 050
  7. HYDROCORTISONE [Concomitant]
     Active Substance: HYDROCORTISONE
     Indication: Product used for unknown indication
     Route: 050
  8. HYDROCORTISONE [Concomitant]
     Active Substance: HYDROCORTISONE
     Route: 050
     Dates: start: 20190110, end: 20190111
  9. NOVOLOG [Concomitant]
     Active Substance: INSULIN ASPART
     Indication: Product used for unknown indication
     Dosage: 0-12 UNITS EVERY MEALS AND AT BEDTIME
     Route: 050
  10. NOVOLOG [Concomitant]
     Active Substance: INSULIN ASPART
     Dosage: 0-12 UNITS, WITH MEALS AT BEDTIME AND 0300H
     Route: 050
     Dates: start: 20190111, end: 20190114
  11. NOVOLOG [Concomitant]
     Active Substance: INSULIN ASPART
     Dosage: 0-12 UNITS, 4 TIMES DAILY WITH MEALS AND AT BEDTIME
     Route: 050
     Dates: start: 20190114, end: 20190215
  12. LANSOPRAZOLE [Concomitant]
     Active Substance: LANSOPRAZOLE
     Indication: Product used for unknown indication
     Dosage: DAILY PRE-BREAKFAST
     Route: 050
  13. LANSOPRAZOLE [Concomitant]
     Active Substance: LANSOPRAZOLE
     Dosage: DAILY BEFORE BREAKFAST
     Route: 050
     Dates: start: 20190201, end: 20190213
  14. LANSOPRAZOLE [Concomitant]
     Active Substance: LANSOPRAZOLE
     Route: 050
     Dates: start: 20190213, end: 20190213
  15. LANSOPRAZOLE [Concomitant]
     Active Substance: LANSOPRAZOLE
     Dosage: DAILY BEFORE BREAKFAST
     Route: 050
     Dates: start: 20190214, end: 20190214
  16. LOPERAMIDE [Concomitant]
     Active Substance: LOPERAMIDE
     Indication: Product used for unknown indication
     Dosage: AS NEEDED
     Route: 050
  17. LOPERAMIDE [Concomitant]
     Active Substance: LOPERAMIDE
     Route: 050
     Dates: start: 20190115, end: 20190122
  18. LOPERAMIDE [Concomitant]
     Active Substance: LOPERAMIDE
     Dosage: AS NEEDED
     Route: 050
     Dates: start: 20190202, end: 20190203
  19. LOPERAMIDE [Concomitant]
     Active Substance: LOPERAMIDE
     Dosage: AS NEEDED
     Route: 050
     Dates: start: 20190203, end: 20190204
  20. MIDODRINE [Concomitant]
     Active Substance: MIDODRINE
     Indication: Product used for unknown indication
     Route: 050
  21. MIDODRINE [Concomitant]
     Active Substance: MIDODRINE
     Route: 050
     Dates: start: 20190121, end: 20190122
  22. MIDODRINE [Concomitant]
     Active Substance: MIDODRINE
     Route: 050
     Dates: start: 20190122, end: 20190205
  23. MIDODRINE [Concomitant]
     Active Substance: MIDODRINE
     Route: 050
     Dates: start: 20190205, end: 20190208
  24. MIDODRINE [Concomitant]
     Active Substance: MIDODRINE
     Route: 050
     Dates: start: 20190208, end: 20190214
  25. ZOSYN [Concomitant]
     Active Substance: PIPERACILLIN SODIUM\TAZOBACTAM SODIUM
     Indication: Product used for unknown indication
     Route: 050
  26. ZOSYN [Concomitant]
     Active Substance: PIPERACILLIN SODIUM\TAZOBACTAM SODIUM
     Dosage: IN ISO-OSM 100ML IVPB PREMIX
     Route: 050
     Dates: start: 20190110, end: 20190116
  27. PYRIDOXINE [Concomitant]
     Active Substance: PYRIDOXINE
     Indication: Product used for unknown indication
     Route: 050
  28. BACTRIM DS [Concomitant]
     Active Substance: SULFAMETHOXAZOLE\TRIMETHOPRIM
     Indication: Product used for unknown indication
     Dosage: 800-160 MILLIGRAM PER TABLET ONCE PER DAY EVERY MONDAY, WEDNESDAY, AND FRIDAYS.
     Route: 050
     Dates: start: 20190213
  29. URSODIOL [Concomitant]
     Active Substance: URSODIOL
     Indication: Product used for unknown indication
     Route: 050
  30. RUXOLITINIB PHOSPHATE [Concomitant]
     Active Substance: RUXOLITINIB PHOSPHATE
     Indication: Product used for unknown indication
     Route: 050
     Dates: start: 20190111, end: 20190215
  31. VANCOMYCIN [Concomitant]
     Active Substance: VANCOMYCIN
     Indication: Product used for unknown indication
     Dosage: IN 500ML NSS IVPB
     Route: 050
     Dates: start: 20190110, end: 20190112
  32. VANCOMYCIN [Concomitant]
     Active Substance: VANCOMYCIN
     Dosage: IN 250ML NSS IVPB
     Route: 050
     Dates: start: 20190211, end: 20190212
  33. VANCOMYCIN [Concomitant]
     Active Substance: VANCOMYCIN
     Dosage: IN 250ML NSS IVPB
     Route: 050
     Dates: start: 20190213, end: 20190213
  34. PREDNISONE [Concomitant]
     Active Substance: PREDNISONE
     Indication: Product used for unknown indication
     Route: 050
     Dates: start: 20190111, end: 20190115
  35. PREDNISONE [Concomitant]
     Active Substance: PREDNISONE
     Route: 050
     Dates: start: 20190116, end: 20190118
  36. PREDNISONE [Concomitant]
     Active Substance: PREDNISONE
     Route: 050
     Dates: start: 20190118, end: 20190119
  37. PREDNISONE [Concomitant]
     Active Substance: PREDNISONE
     Route: 050
     Dates: start: 20190120, end: 20190125
  38. PREDNISONE [Concomitant]
     Active Substance: PREDNISONE
     Route: 050
     Dates: start: 20190126, end: 20190129
  39. PREDNISONE [Concomitant]
     Active Substance: PREDNISONE
     Route: 050
     Dates: start: 20190130, end: 20190130
  40. PREDNISONE [Concomitant]
     Active Substance: PREDNISONE
     Route: 050
     Dates: start: 20190131, end: 20190204
  41. PREDNISONE [Concomitant]
     Active Substance: PREDNISONE
     Route: 050
     Dates: start: 20190205, end: 20190208
  42. PREDNISONE [Concomitant]
     Active Substance: PREDNISONE
     Route: 050
     Dates: start: 20190209, end: 20190212
  43. PREDNISONE [Concomitant]
     Active Substance: PREDNISONE
     Route: 050
     Dates: start: 20190213, end: 20190215
  44. SODIUM CHLORIDE [Concomitant]
     Active Substance: SODIUM CHLORIDE
     Indication: Product used for unknown indication
     Dosage: 1 SPRAY EVERY 4 HOURS WHILE AWAKE
     Route: 050
     Dates: start: 20190112, end: 20190116
  45. SODIUM CHLORIDE [Concomitant]
     Active Substance: SODIUM CHLORIDE
     Dosage: 1 SPRAY
     Route: 050
     Dates: start: 20190117, end: 20190215
  46. SODIUM CHLORIDE [Concomitant]
     Active Substance: SODIUM CHLORIDE
     Dosage: EVERY 4 HOURS PRN
     Route: 050
     Dates: start: 20190122, end: 20190215
  47. LOPERAMIDE [Concomitant]
     Active Substance: LOPERAMIDE
     Indication: Product used for unknown indication
     Dosage: AS NEEDED
     Route: 050
  48. LOPERAMIDE [Concomitant]
     Active Substance: LOPERAMIDE
     Dosage: AS NEEDED
     Route: 050
     Dates: start: 20190122, end: 20190125
  49. LOPERAMIDE [Concomitant]
     Active Substance: LOPERAMIDE
     Route: 050
     Dates: start: 20190125, end: 20190126
  50. LOPERAMIDE [Concomitant]
     Active Substance: LOPERAMIDE
     Dosage: AS NEEDED
     Route: 050
     Dates: start: 20190126, end: 20190202
  51. LOPERAMIDE [Concomitant]
     Active Substance: LOPERAMIDE
     Dosage: AS NEEDED
     Route: 050
     Dates: start: 20190209, end: 20190215
  52. ISAVUCONAZONIUM [Concomitant]
     Active Substance: ISAVUCONAZONIUM
     Indication: Product used for unknown indication
     Route: 050
     Dates: start: 20190117, end: 20190125
  53. ISAVUCONAZONIUM [Concomitant]
     Active Substance: ISAVUCONAZONIUM
     Dosage: DAILY AT BEDTIME
     Route: 050
     Dates: start: 20190125, end: 20190128
  54. ISAVUCONAZONIUM [Concomitant]
     Active Substance: ISAVUCONAZONIUM
     Dosage: IN 250ML NSS IVPB
     Route: 050
     Dates: start: 20190128, end: 20190131
  55. ONDANSETRON [Concomitant]
     Active Substance: ONDANSETRON
     Indication: Product used for unknown indication
     Route: 050
     Dates: start: 20190120, end: 20190122
  56. ONDANSETRON [Concomitant]
     Active Substance: ONDANSETRON
     Dosage: AS NEEDED
     Route: 050
     Dates: start: 20190125, end: 20190215
  57. TAMSULOSIN [Concomitant]
     Active Substance: TAMSULOSIN
     Indication: Product used for unknown indication
     Dosage: AT BEDTIME
     Route: 050
     Dates: start: 20190120, end: 20190121
  58. CEPACOL SORE THROAT NOS [Concomitant]
     Active Substance: BENZOCAINE\MENTHOL OR DYCLONINE HYDROCHLORIDE\GLYCERIN
     Indication: Product used for unknown indication
     Dosage: 1 LOZENGE
     Route: 050
     Dates: start: 20190118, end: 20190118
  59. METRONIDAZOLE [Concomitant]
     Active Substance: METRONIDAZOLE
     Indication: Product used for unknown indication
     Dosage: IN 100ML NSS IVPB PRE-MIX
     Route: 050
     Dates: start: 20190126, end: 20190128
  60. CEFEPIME [Concomitant]
     Active Substance: CEFEPIME HYDROCHLORIDE
     Indication: Product used for unknown indication
     Dosage: IN 50ML IVPB
     Route: 050
     Dates: start: 20190127, end: 20190128
  61. CEFEPIME [Concomitant]
     Active Substance: CEFEPIME HYDROCHLORIDE
     Dosage: IN 50ML IVPB
     Route: 050
     Dates: start: 20190205, end: 20190207
  62. ALLOPURINOL [Concomitant]
     Active Substance: ALLOPURINOL
     Indication: Product used for unknown indication
     Route: 050
     Dates: start: 20190130, end: 20190131
  63. VORICONAZOLE [Concomitant]
     Active Substance: VORICONAZOLE
     Indication: Product used for unknown indication
     Route: 050
     Dates: start: 20190131, end: 20190201
  64. VORICONAZOLE [Concomitant]
     Active Substance: VORICONAZOLE
     Route: 050
     Dates: start: 20190201, end: 20190210
  65. VORICONAZOLE [Concomitant]
     Active Substance: VORICONAZOLE
     Route: 050
     Dates: start: 20190211, end: 20190215
  66. DIPHENHYDRAMINE [Concomitant]
     Active Substance: DIPHENHYDRAMINE
     Indication: Product used for unknown indication
     Route: 050
     Dates: start: 20190206, end: 20190215
  67. ACETAMINOPHEN [Concomitant]
     Active Substance: ACETAMINOPHEN
     Indication: Product used for unknown indication
     Route: 050
     Dates: start: 20190206, end: 20190215
  68. ACETAMINOPHEN [Concomitant]
     Active Substance: ACETAMINOPHEN
     Dosage: AS NEEDED
     Route: 050
     Dates: start: 20190209, end: 20190209
  69. ACETAMINOPHEN [Concomitant]
     Active Substance: ACETAMINOPHEN
     Dosage: AS NEEDED
     Route: 050
     Dates: start: 20190210, end: 20190210
  70. ACETAMINOPHEN [Concomitant]
     Active Substance: ACETAMINOPHEN
     Dosage: AS NEEDED
     Route: 050
     Dates: start: 20190212, end: 20190213
  71. ERYTHROMYCIN [Concomitant]
     Active Substance: ERYTHROMYCIN
     Indication: Product used for unknown indication
     Dosage: 1 APPLICATION
     Route: 050
     Dates: start: 20190209, end: 20190910
  72. DAPTOMYCIN [Concomitant]
     Active Substance: DAPTOMYCIN
     Indication: Product used for unknown indication
     Dosage: IN 50ML NSS IVPB
     Route: 050
     Dates: start: 20190210, end: 20190211
  73. POLYMYXIN TRIMETHOPRIM [Concomitant]
     Indication: Product used for unknown indication
     Dosage: TRIMETHOPRIM - POLYMYXIN B 1000 / 0.1% UNIT/ML 1 DROP
     Route: 050

REACTIONS (3)
  - Graft versus host disease [Fatal]
  - Hypotension [Recovered/Resolved]
  - Post transplant lymphoproliferative disorder [Recovered/Resolved]

NARRATIVE: CASE EVENT DATE: 20190110
